FAERS Safety Report 15629866 (Version 2)
Quarter: 2018Q4

REPORT INFORMATION
  Report Type: Report from Study
  Country: EC (occurrence: EC)
  Receive Date: 20181117
  Receipt Date: 20181119
  Transmission Date: 20190205
  Serious: Yes (Death, Hospitalization, Other)
  Sender: FDA-Public Use
  Company Number: PHHY2018EC136558

PATIENT
  Age: 37 Year
  Sex: Female

DRUGS (6)
  1. GLIVEC [Suspect]
     Active Substance: IMATINIB MESYLATE
     Indication: CHRONIC MYELOID LEUKAEMIA
     Dosage: 500 MG, QD
     Route: 048
     Dates: start: 20140917, end: 20150506
  2. GLIVEC [Suspect]
     Active Substance: IMATINIB MESYLATE
     Dosage: 400 MG, BID
     Route: 048
     Dates: start: 20151001, end: 20160921
  3. GLIVEC [Suspect]
     Active Substance: IMATINIB MESYLATE
     Dosage: 300 MG, BID
     Route: 048
     Dates: start: 20160922, end: 20170214
  4. GLIVEC [Suspect]
     Active Substance: IMATINIB MESYLATE
     Dosage: 400 MG, BID
     Route: 048
     Dates: start: 20170215, end: 20180612
  5. GLIVEC [Suspect]
     Active Substance: IMATINIB MESYLATE
     Dosage: 700 MG, QD (400MG AT MORNING AND 300MG AT NIGHT)
     Route: 048
     Dates: start: 20150507, end: 20150930
  6. TASIGNA [Suspect]
     Active Substance: NILOTINIB
     Indication: CHRONIC MYELOID LEUKAEMIA
     Dosage: 600 MG, QD (200 MG AT MORNING AND 400 MG AT NIGHT)
     Route: 048
     Dates: start: 20180613, end: 20181103

REACTIONS (10)
  - Myocardial infarction [Fatal]
  - Second primary malignancy [Not Recovered/Not Resolved]
  - Metastasis [Unknown]
  - Mass [Unknown]
  - Malignant neoplasm progression [Unknown]
  - Pain in extremity [Unknown]
  - Weight decreased [Unknown]
  - Lymphoma [Not Recovered/Not Resolved]
  - Chronic myeloid leukaemia [Unknown]
  - Swelling [Unknown]

NARRATIVE: CASE EVENT DATE: 201804
